FAERS Safety Report 10280113 (Version 2)
Quarter: 2014Q3

REPORT INFORMATION
  Report Type: Spontaneous
  Country: DO (occurrence: DO)
  Receive Date: 20140707
  Receipt Date: 20140717
  Transmission Date: 20150326
  Serious: Yes (Death)
  Sender: FDA-Public Use
  Company Number: DO-B.I. PHARMACEUTICALS,INC./RIDGEFIELD-2014-BI-30261MX

PATIENT
  Age: 87 Year
  Sex: Female

DRUGS (4)
  1. AMIODARONE [Concomitant]
     Active Substance: AMIODARONE
     Indication: CARDIAC DISORDER
     Route: 048
     Dates: start: 201406, end: 201406
  2. SENSODIAZONE [Concomitant]
     Indication: PNEUMONIA
     Route: 042
     Dates: start: 201406
  3. PRADAXA [Suspect]
     Active Substance: DABIGATRAN ETEXILATE MESYLATE
     Indication: ATRIAL FIBRILLATION
     Dosage: 220 MG
     Route: 048
     Dates: start: 201406, end: 201406
  4. N-ACETYL CYSTEINE [Concomitant]
     Indication: PNEUMONIA
     Route: 042
     Dates: start: 201406

REACTIONS (2)
  - Gastrointestinal haemorrhage [Fatal]
  - Haematuria [Fatal]

NARRATIVE: CASE EVENT DATE: 201406
